FAERS Safety Report 4437692-7 (Version None)
Quarter: 2004Q3

REPORT INFORMATION
  Report Type: 
  Country: None (occurrence: None)
  Receive Date: 20040831
  Receipt Date: 20040621
  Transmission Date: 20050211
  Serious: No
  Sender: FDA-Public Use
  Company Number: US-GLAXOSMITHKLINE-A0515698A

PATIENT
  Sex: Female

DRUGS (1)
  1. ZOVIRAX [Suspect]
     Dosage: 15G UNKNOWN
     Route: 061
     Dates: start: 20030101

REACTIONS (2)
  - DRUG EFFECT PROLONGED [None]
  - ILL-DEFINED DISORDER [None]
